FAERS Safety Report 7683083-5 (Version None)
Quarter: 2011Q3

REPORT INFORMATION
  Report Type: 
  Country: None (occurrence: None)
  Receive Date: 20110815
  Receipt Date: 20110802
  Transmission Date: 20111222
  Serious: Yes (Hospitalization, Other)
  Sender: FDA-Public Use
  Company Number: FR-ELI_LILLY_AND_COMPANY-FR201108000623

PATIENT
  Sex: Female

DRUGS (6)
  1. MONOCRIXO [Concomitant]
     Dosage: 100 MG, QD
     Route: 048
     Dates: end: 20110510
  2. BIODALGIC [Concomitant]
     Dosage: 50 MG, QD
     Route: 048
     Dates: end: 20110510
  3. CYMBALTA [Suspect]
     Dosage: 30 MG, QD
     Route: 048
     Dates: end: 20110510
  4. MEMANTINE HYDROCHLORIDE [Concomitant]
     Dosage: 20 MG, QD
     Route: 048
     Dates: end: 20110510
  5. ACECLOFENAC [Concomitant]
     Dosage: 100 MG, QD
     Route: 048
  6. PROZAC [Suspect]
     Dosage: 20 MG, QD
     Route: 048
     Dates: end: 20110510

REACTIONS (2)
  - FALL [None]
  - ORTHOSTATIC HYPOTENSION [None]
